FAERS Safety Report 6134173-X (Version None)
Quarter: 2009Q1

REPORT INFORMATION
  Report Type: 
  Country: None (occurrence: None)
  Receive Date: 20090326
  Receipt Date: 20081217
  Transmission Date: 20090719
  Serious: No
  Sender: FDA-Public Use
  Company Number: US-AMGEN-US324354

PATIENT
  Sex: Female
  Weight: 61.3 kg

DRUGS (4)
  1. NPLATE [Suspect]
     Indication: DRUG USE FOR UNKNOWN INDICATION
     Dates: start: 20081118
  2. COUMADIN [Concomitant]
  3. PREDNISONE [Concomitant]
  4. ACTONEL [Concomitant]

REACTIONS (1)
  - TOOTH INFECTION [None]
